FAERS Safety Report 21492292 (Version 1)
Quarter: 2022Q4

REPORT INFORMATION
  Report Type: Spontaneous
  Country: US (occurrence: None)
  Receive Date: 20221020
  Receipt Date: 20221020
  Transmission Date: 20230112
  Serious: Yes (Other)
  Sender: FDA-Public Use
  Company Number: None

PATIENT
  Age: 80 Year
  Sex: Female
  Weight: 91.9 kg

DRUGS (9)
  1. OXALIPLATIN [Suspect]
     Active Substance: OXALIPLATIN
     Indication: Pancreatic carcinoma
     Dosage: FREQUENCY : EVERY OTHER WEEK;?
     Route: 042
     Dates: start: 20220802, end: 20220816
  2. OXALIPLATIN [Suspect]
     Active Substance: OXALIPLATIN
     Indication: Pancreatic carcinoma
     Dosage: OTHER FREQUENCY : Q2WEEK;?
     Route: 042
     Dates: start: 20220802, end: 20220816
  3. IRINOTECAN [Concomitant]
     Active Substance: IRINOTECAN
     Dates: start: 20220802, end: 20220816
  4. Luecovorin [Concomitant]
     Dates: start: 20220802, end: 20220816
  5. FLUOROURACIL [Concomitant]
     Active Substance: FLUOROURACIL
     Dates: start: 20220802, end: 20220816
  6. APREPITANT [Concomitant]
     Active Substance: APREPITANT
     Dates: start: 20220802, end: 20220816
  7. DEXAMETHASONE [Concomitant]
     Active Substance: DEXAMETHASONE
     Dates: start: 20220802, end: 20220816
  8. PALONOSETRON [Concomitant]
     Active Substance: PALONOSETRON
     Dates: start: 20220802, end: 20220816
  9. ATROPINE [Concomitant]
     Active Substance: ATROPINE
     Dates: start: 20220802, end: 20220816

REACTIONS (8)
  - Tremor [None]
  - Infusion related reaction [None]
  - Eye movement disorder [None]
  - Feeling hot [None]
  - Dyspnoea [None]
  - Nausea [None]
  - Swollen tongue [None]
  - Drug intolerance [None]

NARRATIVE: CASE EVENT DATE: 20220816
